FAERS Safety Report 8053758-7 (Version None)
Quarter: 2012Q1

REPORT INFORMATION
  Report Type: 
  Country: None (occurrence: None)
  Receive Date: 20120118
  Receipt Date: 20120111
  Transmission Date: 20120608
  Serious: Yes (Death, Hospitalization, Other)
  Sender: FDA-Public Use
  Company Number: PHHY2012FR002993

PATIENT
  Age: 39 Year
  Sex: Female

DRUGS (5)
  1. IRRADIATION [Concomitant]
     Dosage: 12 GY, 6 FRACTIONS AND 3 DAYS
  2. CYCLOPHOSPHAMIDE [Concomitant]
     Dosage: 60 MG/KG, (D-5 AND D-4)
  3. CYCLOSPORINE [Suspect]
     Indication: PROPHYLAXIS AGAINST GRAFT VERSUS HOST DISEASE
     Dosage: UNK UKN, UNK
     Route: 042
  4. FLUDARABINE PHOSPHATE [Concomitant]
     Dosage: 25 MG/M2, (D-6, D-5 AND D-4)
  5. MYCOPHENOLATE MOFETIL [Suspect]
     Indication: PROPHYLAXIS AGAINST GRAFT VERSUS HOST DISEASE
     Dosage: UNK UKN, UNK

REACTIONS (15)
  - MULTI-ORGAN FAILURE [None]
  - CHEST PAIN [None]
  - PYREXIA [None]
  - GENERALISED OEDEMA [None]
  - GRAFT VERSUS HOST DISEASE IN INTESTINE [None]
  - LIVER DISORDER [None]
  - DEPRESSED LEVEL OF CONSCIOUSNESS [None]
  - TACHYCARDIA [None]
  - DILATATION VENTRICULAR [None]
  - TRICUSPID VALVE INCOMPETENCE [None]
  - PERICARDIAL EFFUSION [None]
  - EJECTION FRACTION DECREASED [None]
  - HUMAN HERPESVIRUS 6 INFECTION [None]
  - PNEUMONIA [None]
  - MALIGNANT PLEURAL EFFUSION [None]
